FAERS Safety Report 14048720 (Version 2)
Quarter: 2017Q4

REPORT INFORMATION
  Report Type: Report from Study
  Country: US (occurrence: US)
  Receive Date: 20171005
  Receipt Date: 20171122
  Transmission Date: 20180321
  Serious: Yes (Death)
  Sender: FDA-Public Use
  Company Number: US-VIFOR (INTERNATIONAL) INC.-VIT-2017-10090

PATIENT
  Age: 92 Year
  Sex: Male
  Weight: 73.55 kg

DRUGS (8)
  1. COREG [Concomitant]
     Active Substance: CARVEDILOL
  2. MAGNESIUM OXIDE. [Concomitant]
     Active Substance: MAGNESIUM OXIDE
  3. ACETYLSALICYLIC ACID [Concomitant]
     Active Substance: ASPIRIN
  4. VELTASSA [Suspect]
     Active Substance: PATIROMER
     Indication: HYPERKALAEMIA
     Route: 048
     Dates: start: 20170405
  5. LASIX [Concomitant]
     Active Substance: FUROSEMIDE
  6. LOTUS [Concomitant]
  7. OCUVITE [Concomitant]
     Active Substance: VITAMINS
  8. CLONIDINE. [Concomitant]
     Active Substance: CLONIDINE

REACTIONS (1)
  - Death [Fatal]

NARRATIVE: CASE EVENT DATE: 20170921
